FAERS Safety Report 7632330-4 (Version None)
Quarter: 2011Q3

REPORT INFORMATION
  Report Type: 
  Country: None (occurrence: None)
  Receive Date: 20110725
  Receipt Date: 20100803
  Transmission Date: 20111222
  Serious: No
  Sender: FDA-Public Use
  Company Number: US-BRISTOL-MYERS SQUIBB COMPANY-15222979

PATIENT
  Age: 47 Year
  Sex: Female
  Weight: 113 kg

DRUGS (3)
  1. CHOLESTEROL MEDICATION [Concomitant]
     Indication: BLOOD CHOLESTEROL INCREASED
  2. COUMADIN [Suspect]
     Indication: THROMBOSIS
     Dosage: 1ST RECEIVED 10MG. REDUCED TO 5MG. INCREASED TO 10MG AND 7MG ON ALTERNATE DAYS.
     Dates: start: 20100618
  3. BLOOD PRESSURE MEDICATION [Concomitant]
     Indication: HYPERTENSION

REACTIONS (1)
  - INTERNATIONAL NORMALISED RATIO DECREASED [None]
